FAERS Safety Report 17967058 (Version 1)
Quarter: 2020Q3

REPORT INFORMATION
  Report Type: Spontaneous
  Country: CH (occurrence: CH)
  Receive Date: 20200701
  Receipt Date: 20200701
  Transmission Date: 20201103
  Serious: Yes (Hospitalization)
  Sender: FDA-Public Use
  Company Number: CH-ROCHE-2629620

PATIENT
  Age: 60 Year
  Sex: Male

DRUGS (7)
  1. XELODA [Suspect]
     Active Substance: CAPECITABINE
     Indication: PRODUCT USED FOR UNKNOWN INDICATION
     Route: 048
     Dates: start: 20200120, end: 20200214
  2. PALEXIA [Interacting]
     Active Substance: TAPENTADOL HYDROCHLORIDE
     Indication: PRODUCT USED FOR UNKNOWN INDICATION
     Route: 048
     Dates: start: 20200116
  3. CEFUROXIME. [Interacting]
     Active Substance: CEFUROXIME
     Indication: PRODUCT USED FOR UNKNOWN INDICATION
     Route: 048
     Dates: start: 202002, end: 20200221
  4. ATORVASTATIN [Concomitant]
     Active Substance: ATORVASTATIN
     Dosage: DATA DI INIZIO TERAPIA NON NOTA.
     Route: 048
  5. ASPIRIN CARDIO [Concomitant]
     Active Substance: ASPIRIN
     Dosage: DATA DI INIZIO TERAPIA NON NOTA.
     Route: 048
  6. CONCOR [Concomitant]
     Active Substance: BISOPROLOL FUMARATE
     Dosage: DATA DI INIZIO TERAPIA NON NOTA.
     Route: 048
  7. TRIATEC [RAMIPRIL] [Concomitant]
     Active Substance: RAMIPRIL
     Dosage: DATA DI INIZIO TERAPIA NON NOTA.
     Route: 048

REACTIONS (6)
  - Dehydration [Recovered/Resolved]
  - Acute kidney injury [Recovering/Resolving]
  - Abdominal pain [Recovered/Resolved]
  - Diarrhoea [Recovered/Resolved]
  - Vomiting [Recovered/Resolved]
  - Ileus paralytic [Recovered/Resolved]

NARRATIVE: CASE EVENT DATE: 20200213
